FAERS Safety Report 17875893 (Version 2)
Quarter: 2020Q2

REPORT INFORMATION
  Report Type: Spontaneous
  Country: IT (occurrence: IT)
  Receive Date: 20200609
  Receipt Date: 20200623
  Transmission Date: 20200714
  Serious: Yes (Other)
  Sender: FDA-Public Use
  Company Number: IT-BAYER-2020-104975

PATIENT
  Sex: Male

DRUGS (2)
  1. CIPROXIN 500 MG [Suspect]
     Active Substance: CIPROFLOXACIN
     Indication: SALMONELLOSIS
     Dosage: 500 MG, QD
  2. CIPROXIN 500 MG [Suspect]
     Active Substance: CIPROFLOXACIN
     Indication: SALMONELLOSIS
     Dosage: 500 MG, BID
     Dates: start: 20150601

REACTIONS (10)
  - Cognitive disorder [None]
  - Neurodegenerative disorder [Not Recovered/Not Resolved]
  - Amnesia [None]
  - Fatigue [None]
  - Intervertebral disc disorder [None]
  - Loss of personal independence in daily activities [None]
  - Tendon disorder [None]
  - Dysarthria [None]
  - Paraesthesia [Not Recovered/Not Resolved]
  - Panic attack [None]
